FAERS Safety Report 15191682 (Version 2)
Quarter: 2018Q4

REPORT INFORMATION
  Report Type: Report from Study
  Country: BR (occurrence: BR)
  Receive Date: 20180724
  Receipt Date: 20181130
  Transmission Date: 20190204
  Serious: Yes (Other)
  Sender: FDA-Public Use
  Company Number: BR-SAKK-2018SA146520AA

PATIENT
  Age: 78 Year
  Sex: Female
  Weight: 84 kg

DRUGS (9)
  1. LYRICA [Concomitant]
     Active Substance: PREGABALIN
     Indication: NEUROPATHY PERIPHERAL
     Dosage: 75 MG, UNK
     Route: 048
     Dates: start: 2010
  2. LAMOTRIGINE. [Concomitant]
     Active Substance: LAMOTRIGINE
     Indication: SEIZURE
     Dosage: 25 MG, UNK
     Route: 048
     Dates: start: 201710
  3. LASIX [Suspect]
     Active Substance: FUROSEMIDE
     Indication: NEPHROLITHIASIS
  4. DIOSMIN [Concomitant]
     Active Substance: DIOSMIN
     Indication: HYPERTENSION
     Dosage: 450 MG, UNK
     Route: 048
     Dates: start: 2008
  5. CODEINE [Concomitant]
     Active Substance: CODEINE
     Indication: ANALGESIC THERAPY
     Dosage: 30 MG, UNK
     Route: 048
     Dates: start: 2010
  6. INSULIN GLARGINE [Suspect]
     Active Substance: INSULIN GLARGINE
     Indication: DIABETES MELLITUS
     Dosage: 40 UIU, QD
     Route: 058
     Dates: start: 2017
  7. LASIX [Suspect]
     Active Substance: FUROSEMIDE
     Indication: HYPERTENSION
     Dosage: 40 MG
     Route: 048
     Dates: start: 2015
  8. JARDIANCE [Concomitant]
     Active Substance: EMPAGLIFLOZIN
     Indication: DIABETES MELLITUS
     Dosage: 25 MG, UNK
     Route: 048
     Dates: start: 201708
  9. ALLOPURINOL. [Suspect]
     Active Substance: ALLOPURINOL
     Indication: NEPHROLITHIASIS
     Dosage: 100 MG, UNK
     Route: 048
     Dates: start: 2015

REACTIONS (2)
  - Renal failure [Unknown]
  - Product use issue [Unknown]

NARRATIVE: CASE EVENT DATE: 2017
